FAERS Safety Report 5064434-7 (Version None)
Quarter: 2006Q3

REPORT INFORMATION
  Report Type: 
  Country: None (occurrence: None)
  Receive Date: 20060728
  Receipt Date: 20060721
  Transmission Date: 20061208
  Serious: Yes (Death, Other)
  Sender: FDA-Public Use
  Company Number: US-AVENTIS-200616174US

PATIENT
  Sex: Male

DRUGS (11)
  1. KETEK [Suspect]
     Indication: PERTUSSIS
     Dates: start: 20060411
  2. KETEK [Suspect]
     Dates: start: 20060321
  3. ASPIRIN [Concomitant]
  4. LASIX [Concomitant]
     Dosage: DOSE: UNK
  5. AMARYL [Concomitant]
     Dosage: DOSE: UNK
  6. ARANESP [Concomitant]
     Dosage: DOSE: UNK
  7. CALCITRIOL [Concomitant]
     Dosage: DOSE: UNK
  8. ADVICOR - SLOW RELEASE [Concomitant]
     Dosage: DOSE: UNK
  9. COREG [Concomitant]
     Dosage: DOSE: UNK
  10. PROTONIX [Concomitant]
     Dosage: DOSE: UNK
  11. NISOREX [Concomitant]
     Dosage: DOSE: UNK

REACTIONS (5)
  - HEPATIC ENZYME INCREASED [None]
  - HEPATIC FAILURE [None]
  - JAUNDICE [None]
  - RENAL FAILURE ACUTE [None]
  - VISION BLURRED [None]
